FAERS Safety Report 25096037 (Version 1)
Quarter: 2025Q1

REPORT INFORMATION
  Report Type: Spontaneous
  Country: CN (occurrence: CN)
  Receive Date: 20250319
  Receipt Date: 20250319
  Transmission Date: 20250408
  Serious: Yes (Hospitalization, Other)
  Sender: BAXTER
  Company Number: None

PATIENT
  Age: 70 Year
  Sex: Female
  Weight: 65 kg

DRUGS (6)
  1. CYCLOPHOSPHAMIDE [Suspect]
     Active Substance: CYCLOPHOSPHAMIDE
     Indication: B-cell lymphoma
     Dosage: 1 G, QD
     Route: 041
     Dates: start: 20250228, end: 20250228
  2. SODIUM CHLORIDE [Suspect]
     Active Substance: SODIUM CHLORIDE
     Dosage: VINDESINE SULFATE FOR INJECTION 2 MG WITH 0.9% NS100ML IVGTT
     Route: 041
     Dates: start: 20250228, end: 20250228
  3. SODIUM CHLORIDE [Suspect]
     Active Substance: SODIUM CHLORIDE
     Dosage: CYCLOPHOSPHAMIDE FOR INJECTION 1 G WITH 0.9% NS500ML  IVGTT QD
     Route: 041
     Dates: start: 20250228, end: 20250228
  4. SODIUM CHLORIDE [Suspect]
     Active Substance: SODIUM CHLORIDE
     Dosage: EPIRUBICIN FOR INJECTION 60MG WITH 0.9% NS100ML INTRAVENOUS DRIP, ONCE A DAY
     Route: 041
     Dates: start: 20250228, end: 20250228
  5. VINDESINE SULFATE [Suspect]
     Active Substance: VINDESINE SULFATE
     Indication: B-cell lymphoma
     Dosage: 2 MG, QD
     Route: 041
     Dates: start: 20250228, end: 20250228
  6. EPIRUBICIN HYDROCHLORIDE [Suspect]
     Active Substance: EPIRUBICIN HYDROCHLORIDE
     Indication: B-cell lymphoma
     Dosage: 60 MG, QD
     Route: 041
     Dates: start: 20250228, end: 20250228

REACTIONS (1)
  - White blood cell count decreased [Recovering/Resolving]

NARRATIVE: CASE EVENT DATE: 20250311
